FAERS Safety Report 5679921-8 (Version None)
Quarter: 2008Q1

REPORT INFORMATION
  Report Type: 
  Country: None (occurrence: None)
  Receive Date: 20080324
  Receipt Date: 20080307
  Transmission Date: 20080703
  Serious: No
  Sender: FDA-Public Use
  Company Number: 001#1#2008-00154

PATIENT
  Age: 73 Year
  Sex: Female

DRUGS (1)
  1. NEUPRO [Suspect]
     Indication: PARKINSON'S DISEASE
     Dosage: 8MG/24H, 1 IN 1 D, TRANSDERMAL
     Route: 062
     Dates: start: 20070401, end: 20080301

REACTIONS (2)
  - APPLICATION SITE HYPERSENSITIVITY [None]
  - DERMATITIS CONTACT [None]
